FAERS Safety Report 18891738 (Version 1)
Quarter: 2021Q1

REPORT INFORMATION
  Report Type: Spontaneous
  Country: GB (occurrence: GB)
  Receive Date: 20210215
  Receipt Date: 20210215
  Transmission Date: 20210420
  Serious: Yes (Other)
  Sender: FDA-Public Use
  Company Number: GB-TILLOMEDPR-2021-EPL-000446

PATIENT
  Age: 22 Year
  Sex: Female
  Weight: 76 kg

DRUGS (5)
  1. FLUCONAZOLE. [Concomitant]
     Active Substance: FLUCONAZOLE
     Indication: ILL-DEFINED DISORDER
     Dosage: USE AS DIRECTED
     Dates: start: 20201204, end: 20201205
  2. TRANEXAMIC ACID. [Suspect]
     Active Substance: TRANEXAMIC ACID
     Indication: PRODUCT USED FOR UNKNOWN INDICATION
     Dosage: 500 MILLIGRAM
     Dates: start: 20210205
  3. RIGEVIDON [Concomitant]
     Indication: ILL-DEFINED DISORDER
     Dosage: TAKE ONE AS DIRECTED (HAVE A PILL FREE INTERVAL...
     Dates: start: 20200629
  4. CETIRIZINE [Concomitant]
     Active Substance: CETIRIZINE HYDROCHLORIDE
     Indication: ILL-DEFINED DISORDER
     Dosage: TAKE ONE DAILY
     Dates: start: 20210205
  5. PROVERA [Concomitant]
     Active Substance: MEDROXYPROGESTERONE ACETATE
     Indication: ILL-DEFINED DISORDER
     Dosage: ONCE DAILY FOR 5 DAYS
     Dates: start: 20210205

REACTIONS (1)
  - Gingival swelling [Recovering/Resolving]

NARRATIVE: CASE EVENT DATE: 20210205
